FAERS Safety Report 22386365 (Version 2)
Quarter: 2023Q2

REPORT INFORMATION
  Report Type: Spontaneous
  Country: US (occurrence: None)
  Receive Date: 20230530
  Receipt Date: 20230616
  Transmission Date: 20230721
  Serious: Yes (Hospitalization, Other)
  Sender: FDA-Public Use
  Company Number: US-Unichem Pharmaceuticals (USA) Inc-UCM202305-000656

PATIENT
  Age: 40 Year
  Sex: Female

DRUGS (4)
  1. METFORMIN HYDROCHLORIDE [Suspect]
     Active Substance: METFORMIN HYDROCHLORIDE
     Indication: Type 2 diabetes mellitus
     Dosage: UNKNOWN
  2. VANCOMYCIN [Concomitant]
     Active Substance: VANCOMYCIN
     Indication: Product used for unknown indication
     Dosage: UNKNOWN
  3. CEFEPIME [Concomitant]
     Active Substance: CEFEPIME HYDROCHLORIDE
     Indication: Product used for unknown indication
     Dosage: UNKNOWN
  4. PROPOFOL [Concomitant]
     Active Substance: PROPOFOL
     Indication: Sedation

REACTIONS (4)
  - Depressed level of consciousness [Unknown]
  - Shock [Unknown]
  - Lactic acidosis [Unknown]
  - Hypothermia [Unknown]
